FAERS Safety Report 5654692-X (Version None)
Quarter: 2008Q1

REPORT INFORMATION
  Report Type: 
  Country: None (occurrence: None)
  Receive Date: 20080307
  Receipt Date: 20080226
  Transmission Date: 20080703
  Serious: Yes (Hospitalization)
  Sender: FDA-Public Use
  Company Number: JP-JNJFOC-20080300569

PATIENT
  Age: 75 Year
  Sex: Male

DRUGS (6)
  1. CRAVIT [Suspect]
     Indication: INFECTION
     Route: 048
  2. CALONAL [Suspect]
     Indication: DRUG USE FOR UNKNOWN INDICATION
     Route: 048
  3. OZEX [Suspect]
     Indication: DRUG USE FOR UNKNOWN INDICATION
     Route: 065
  4. URSO 250 [Suspect]
     Indication: DRUG USE FOR UNKNOWN INDICATION
     Route: 065
  5. MUCOSOLVAN [Concomitant]
     Route: 065
  6. SELBEX [Concomitant]
     Route: 065

REACTIONS (1)
  - INTERSTITIAL LUNG DISEASE [None]
